FAERS Safety Report 17916131 (Version 1)
Quarter: 2020Q2

REPORT INFORMATION
  Report Type: Spontaneous
  Country: DE (occurrence: DE)
  Receive Date: 20200619
  Receipt Date: 20200619
  Transmission Date: 20200714
  Serious: Yes (Hospitalization)
  Sender: FDA-Public Use
  Company Number: DE-TEVA-2020-DE-1789132

PATIENT
  Age: 80 Year
  Sex: Male
  Weight: 80 kg

DRUGS (11)
  1. ACETYLSALICYLSAURE [Concomitant]
     Active Substance: ASPIRIN
     Dosage: 100 MILLIGRAM DAILY; 1-0-0-0
  2. PREDNISOLON [Suspect]
     Active Substance: PREDNISOLONE
     Dosage: 20 MILLIGRAM DAILY; 1-0-0-0
  3. GABAPENTIN. [Suspect]
     Active Substance: GABAPENTIN
     Dosage: 900 MILLIGRAM DAILY;  1-1-1-0
  4. SALBUTAMOL [Concomitant]
     Active Substance: ALBUTEROL
     Dosage: 0.1 MG, NEED, SPRAY
  5. METAMIZOL [Concomitant]
     Active Substance: METAMIZOLE SODIUM
     Dosage: 500 MG, NEED
  6. PANTOPRAZOL [Concomitant]
     Active Substance: PANTOPRAZOLE SODIUM
     Dosage: 40 MILLIGRAM DAILY; 1-0-0-0
  7. ATORVASTATIN [Concomitant]
     Active Substance: ATORVASTATIN
     Dosage: 40 MILLIGRAM DAILY; 0-0-1-0
  8. TORASEMID [Concomitant]
     Active Substance: TORSEMIDE
     Dosage: 10 MILLIGRAM DAILY;  1-0-0-0
  9. BUDESONID [Concomitant]
     Active Substance: BUDESONIDE
     Dosage: .4 MILLIGRAM DAILY; 1-0-1-0,SPRAY
  10. TAMSULOSIN [Suspect]
     Active Substance: TAMSULOSIN
     Dosage: .4 MILLIGRAM DAILY;  0-0-1-0
  11. L-THYROX HEXAL 75MIKROGRAMM [Concomitant]
     Dosage: 75 MICROGRAM DAILY;  1-0-0-0

REACTIONS (4)
  - Hypertension [Unknown]
  - Angina pectoris [Unknown]
  - Tachycardia [Unknown]
  - General physical health deterioration [Unknown]
